FAERS Safety Report 5246212-9 (Version None)
Quarter: 2007Q1

REPORT INFORMATION
  Report Type: 
  Country: None (occurrence: None)
  Receive Date: 20070221
  Receipt Date: 20070206
  Transmission Date: 20070707
  Serious: Yes (Hospitalization, Other)
  Sender: FDA-Public Use
  Company Number: 2006JP004334

PATIENT
  Age: 50 Year
  Sex: Female
  Weight: 54 kg

DRUGS (15)
  1. TACROLIMUS CAPSULES (TACROLIMUS) CAPSULES [Suspect]
     Indication: MYASTHENIA GRAVIS
     Dosage: SEE IMAGE
     Route: 048
     Dates: start: 20060618, end: 20060720
  2. TACROLIMUS CAPSULES (TACROLIMUS) CAPSULES [Suspect]
     Indication: MYASTHENIA GRAVIS
     Dosage: SEE IMAGE
     Route: 048
     Dates: start: 20060801, end: 20060901
  3. TACROLIMUS CAPSULES (TACROLIMUS) CAPSULES [Suspect]
     Indication: MYASTHENIA GRAVIS
     Dosage: SEE IMAGE
     Route: 048
     Dates: start: 20060901, end: 20061014
  4. TACROLIMUS CAPSULES (TACROLIMUS) CAPSULES [Suspect]
     Indication: MYASTHENIA GRAVIS
     Dosage: SEE IMAGE
     Route: 048
     Dates: start: 20061017, end: 20061026
  5. RHEUMATREX [Suspect]
     Indication: RHEUMATOID ARTHRITIS
     Dosage: SEE IMAGE
     Route: 048
     Dates: start: 20030312
  6. MEDROL [Concomitant]
  7. MESTINON [Concomitant]
  8. ASPARA-CA (ASPARTATE CALCIUM) [Concomitant]
  9. ALOSTIOL [Concomitant]
  10. LEUCOVORIN CALCIUM [Concomitant]
  11. OMEPRAZON [Concomitant]
  12. AMOBAN (ZOPICLONE) [Concomitant]
  13. BONALON (ALENDRONIC ACID) [Concomitant]
  14. LOXONIN (LOXOPROFEN SODIUM) [Concomitant]
  15. VOLTAREN [Concomitant]

REACTIONS (11)
  - ANGIOPATHY [None]
  - BLOOD CHOLESTEROL INCREASED [None]
  - BLOOD PRESSURE INCREASED [None]
  - BLOOD UREA DECREASED [None]
  - CEREBRAL INFARCTION [None]
  - FOLLICULITIS [None]
  - LACUNAR INFARCTION [None]
  - LOW DENSITY LIPOPROTEIN INCREASED [None]
  - NASOPHARYNGITIS [None]
  - TRANSIENT ISCHAEMIC ATTACK [None]
  - VASCULITIS [None]
